FAERS Safety Report 22295131 (Version 1)
Quarter: 2023Q2

REPORT INFORMATION
  Report Type: Spontaneous
  Country: CA (occurrence: CA)
  Receive Date: 20230508
  Receipt Date: 20230508
  Transmission Date: 20230722
  Serious: Yes (Hospitalization, Other)
  Sender: FDA-Public Use
  Company Number: CA-ORGANON-O2305CAN000294

PATIENT
  Sex: Female
  Weight: 1 kg

DRUGS (19)
  1. DIPROSONE [Suspect]
     Active Substance: BETAMETHASONE DIPROPIONATE
     Indication: Maternal therapy to enhance foetal lung maturity
     Dosage: UNK
     Route: 064
  2. AMPHOTERICIN B [Suspect]
     Active Substance: AMPHOTERICIN B
     Indication: Antifungal prophylaxis
     Dosage: UNK, DOSAGE FORM: NOT SPECIFIED
     Route: 064
  3. CEFUROXIME [Suspect]
     Active Substance: CEFUROXIME
     Indication: Pericoronitis
     Dosage: UNK
     Route: 065
  4. CEFUROXIME [Suspect]
     Active Substance: CEFUROXIME
     Indication: Febrile neutropenia
     Dosage: UNK, DOSAGE FORM: NOT SPECIFIED
     Route: 064
  5. CYTARABINE [Suspect]
     Active Substance: CYTARABINE
     Indication: Product used for unknown indication
     Dosage: 1000 MILLIGRAM/SQ. METER, CYCLICAL
     Route: 064
  6. CYTARABINE [Suspect]
     Active Substance: CYTARABINE
     Indication: Acute myeloid leukaemia
     Dosage: UNK, CYCLICAL; DOSAGE FORM: POWDER FOR SOLUTION INTRATHECAL
     Route: 064
  7. CYTARABINE [Suspect]
     Active Substance: CYTARABINE
     Dosage: UNK
     Route: 064
  8. CYTARABINE [Suspect]
     Active Substance: CYTARABINE
     Dosage: UNK, DOSAGE FORM: POWDER FOR SOLUTION INTRATHECAL
     Route: 064
  9. DAUNORUBICIN [Suspect]
     Active Substance: DAUNORUBICIN
     Indication: Acute myeloid leukaemia
     Dosage: UNK, CYCLICAL
     Route: 064
  10. DAUNORUBICIN [Suspect]
     Active Substance: DAUNORUBICIN
     Dosage: UNK
     Route: 064
  11. DINOPROSTONE [Suspect]
     Active Substance: DINOPROSTONE
     Indication: Product used for unknown indication
     Dosage: UNK
     Route: 065
  12. DINOPROSTONE [Suspect]
     Active Substance: DINOPROSTONE
     Indication: Induction of cervix ripening
     Dosage: UNK, DOSAGE FORM: NOT SPECIFIED
     Route: 064
  13. FERROUS SULFATE ANHYDROUS [Suspect]
     Active Substance: FERROUS SULFATE ANHYDROUS
     Indication: Supplementation therapy
     Dosage: UNK,DOSAGE FORM: NOT SPECIFIED
     Route: 064
  14. MAGNESIUM [Suspect]
     Active Substance: MAGNESIUM
     Indication: Nervous system disorder prophylaxis
     Dosage: UNK, DOSAGE FORM: NOT SPECIFIED
     Route: 064
  15. MEROPENEM [Suspect]
     Active Substance: MEROPENEM
     Indication: Pericoronitis
     Dosage: UNK
     Route: 065
  16. MEROPENEM [Suspect]
     Active Substance: MEROPENEM
     Indication: Febrile neutropenia
     Dosage: UNK, DOSAGE FORM: POWDER FOR SOLUTION INTRAVENOUS
     Route: 064
  17. METRONIDAZOLE [Suspect]
     Active Substance: METRONIDAZOLE
     Indication: Pericoronitis
     Dosage: UNK, DOSAGE FORM: NOT SPECIFIED
     Route: 064
  18. METRONIDAZOLE [Suspect]
     Active Substance: METRONIDAZOLE
     Indication: Febrile neutropenia
     Dosage: UNK
     Route: 065
  19. OXYTOCIN [Suspect]
     Active Substance: OXYTOCIN
     Indication: Labour induction
     Dosage: UNK, DOSAGE FORM: NOT SPECIFIED
     Route: 065

REACTIONS (6)
  - Foetal anaemia [Recovered/Resolved]
  - Foetal exposure during pregnancy [Recovered/Resolved]
  - Haemoglobin decreased [Recovered/Resolved]
  - Periventricular leukomalacia [Recovered/Resolved]
  - Premature baby [Recovered/Resolved]
  - White matter lesion [Recovered/Resolved]
